FAERS Safety Report 11779382 (Version 2)
Quarter: 2015Q4

REPORT INFORMATION
  Report Type: Report from Study
  Country: JP (occurrence: JP)
  Receive Date: 20151125
  Receipt Date: 20151130
  Transmission Date: 20160304
  Serious: Yes (Hospitalization)
  Sender: FDA-Public Use
  Company Number: JP-TAKEDA-2015TJP022128

PATIENT
  Age: 73 Year
  Sex: Female
  Weight: 55.2 kg

DRUGS (14)
  1. IXAZOMIB [Suspect]
     Active Substance: IXAZOMIB
     Indication: PLASMA CELL MYELOMA
     Dosage: UNK, 1/WEEK
     Route: 048
     Dates: start: 20141211
  2. SLOW-K [Concomitant]
     Active Substance: POTASSIUM CHLORIDE
     Indication: HYPOKALAEMIA
     Dosage: 1200 MG, QD
     Route: 048
     Dates: start: 20151114
  3. LENALIDOMIDE [Suspect]
     Active Substance: LENALIDOMIDE
     Dosage: 10 MG, QD
     Route: 048
     Dates: start: 20150305
  4. DEXAMETHASONE. [Suspect]
     Active Substance: DEXAMETHASONE
     Indication: PLASMA CELL MYELOMA
     Dosage: 40 MG, 1/WEEK
     Route: 048
     Dates: start: 20141211
  5. BAYASPIRIN [Concomitant]
     Active Substance: ASPIRIN
     Indication: THROMBOSIS PROPHYLAXIS
     Dosage: 100 MG, QD
     Route: 048
     Dates: start: 20141225
  6. ZOLPIDEM TARTRATE. [Concomitant]
     Active Substance: ZOLPIDEM TARTRATE
     Indication: PROPHYLAXIS
     Dosage: 10 MG, QD
     Route: 048
     Dates: start: 20151006
  7. CYTOTEC [Concomitant]
     Active Substance: MISOPROSTOL
     Indication: PROPHYLAXIS OF NAUSEA AND VOMITING
     Dosage: 200 ?G, UNK
     Route: 048
     Dates: start: 20151114
  8. TRAZODONE [Concomitant]
     Active Substance: TRAZODONE HYDROCHLORIDE
     Indication: DEPRESSION
     Dosage: 12.5 MG, UNK
     Route: 048
     Dates: start: 20151112
  9. LENALIDOMIDE [Suspect]
     Active Substance: LENALIDOMIDE
     Indication: PLASMA CELL MYELOMA
     Dosage: 25 MG, QD
     Route: 048
     Dates: start: 20141211
  10. LENALIDOMIDE [Suspect]
     Active Substance: LENALIDOMIDE
     Dosage: 15 MG, QD
     Route: 048
     Dates: start: 20150108
  11. CYTOTEC [Concomitant]
     Active Substance: MISOPROSTOL
     Indication: GASTRITIS PROPHYLAXIS
  12. BACTRAMIN [Concomitant]
     Active Substance: SULFAMETHOXAZOLE\TRIMETHOPRIM
     Indication: PROPHYLAXIS
     Dosage: 1 DF, QD
     Route: 048
     Dates: start: 20141225
  13. UNISIA [Concomitant]
     Active Substance: AMLODIPINE BESYLATE\CANDESARTAN CILEXETIL
     Indication: HYPERTENSION
     Dosage: 1 DF, QD
     Route: 048
     Dates: start: 20141209
  14. LOXOPROFEN SODIUM [Concomitant]
     Active Substance: LOXOPROFEN SODIUM
     Indication: HEADACHE
     Dosage: 60 MG, UNK
     Route: 048

REACTIONS (1)
  - Infection [Recovered/Resolved]

NARRATIVE: CASE EVENT DATE: 20151117
